FAERS Safety Report 10710341 (Version 2)
Quarter: 2015Q1

REPORT INFORMATION
  Report Type: Spontaneous
  Country: US (occurrence: None)
  Receive Date: 20150112
  Receipt Date: 20150122
  Transmission Date: 20150721
  Serious: Yes (Other)
  Sender: FDA-Public Use
  Company Number: 2014SA168734

PATIENT
  Age: 84 Year
  Sex: Male
  Weight: 88 kg

DRUGS (20)
  1. TAMSULOSIN HYDROCHLORIDE. [Concomitant]
     Active Substance: TAMSULOSIN HYDROCHLORIDE
  2. GLUCOSAMINE [Concomitant]
     Active Substance: GLUCOSAMINE
  3. OMEGA 3 [Concomitant]
     Active Substance: OMEGA-3 FATTY ACIDS
  4. MIRABEGRON [Concomitant]
     Active Substance: MIRABEGRON
  5. EDEX [Concomitant]
     Active Substance: ALPROSTADIL
  6. ESOMEPRAZOLE [Concomitant]
     Active Substance: ESOMEPRAZOLE
  7. FLUTICASONE FUROATE/VILANTEROL TRIFENATATE [Concomitant]
  8. DEXILANT [Concomitant]
     Active Substance: DEXLANSOPRAZOLE
  9. ARTIFICIAL TEARS [Concomitant]
     Active Substance: GLYCERIN\HYPROMELLOSES\POLYETHYLENE GLYCOL 400
  10. XARELTO [Concomitant]
     Active Substance: RIVAROXABAN
  11. ACT TOTAL CARE DRY MOUTH ANTICAVITY MOUTH [Suspect]
     Active Substance: SODIUM FLUORIDE
     Indication: DRY MOUTH
     Dates: start: 20141201, end: 20141201
  12. EFFIENT [Concomitant]
     Active Substance: PRASUGREL HYDROCHLORIDE
  13. AVODART [Concomitant]
     Active Substance: DUTASTERIDE
  14. ATORVASTATIN [Concomitant]
     Active Substance: ATORVASTATIN
  15. FLOMAX [Concomitant]
     Active Substance: TAMSULOSIN HYDROCHLORIDE
  16. ATENOLOL. [Concomitant]
     Active Substance: ATENOLOL
  17. ISOSORBIDE MN [Concomitant]
     Active Substance: ISOSORBIDE MONONITRATE
  18. BENEFIBER [Concomitant]
     Active Substance: STARCH, WHEAT
  19. HYTRIN [Concomitant]
     Active Substance: TERAZOSIN HYDROCHLORIDE
  20. VOLTAREN [Concomitant]
     Active Substance: DICLOFENAC SODIUM

REACTIONS (7)
  - Dry eye [None]
  - Product packaging issue [None]
  - Blindness [None]
  - Pain [None]
  - Astigmatism [None]
  - Accidental exposure to product [None]
  - Eye irritation [None]

NARRATIVE: CASE EVENT DATE: 20141201
